FAERS Safety Report 6770855-4 (Version None)
Quarter: 2010Q2

REPORT INFORMATION
  Report Type: 
  Country: None (occurrence: None)
  Receive Date: 20100614
  Receipt Date: 20100614
  Transmission Date: 20101027
  Serious: No
  Sender: FDA-Public Use
  Company Number: None

PATIENT
  Age: 76 Year
  Sex: Male
  Weight: 88 kg

DRUGS (1)
  1. FACTOR VIIA, RECOMBINANT [Suspect]
     Indication: PROCOAGULANT THERAPY
     Dosage: 1840 UNITS EVERY DAY IV
     Route: 042
     Dates: start: 20100429, end: 20100430

REACTIONS (1)
  - DEEP VEIN THROMBOSIS [None]
